FAERS Safety Report 20086849 (Version 1)
Quarter: 2021Q4

REPORT INFORMATION
  Report Type: Spontaneous
  Country: US (occurrence: US)
  Receive Date: 20211118
  Receipt Date: 20211118
  Transmission Date: 20220304
  Serious: Yes (Other)
  Sender: FDA-Public Use
  Company Number: US-PFIZER INC-2021846027

PATIENT
  Age: 73 Year

DRUGS (2)
  1. PREMPRO [Suspect]
     Active Substance: ESTROGENS, CONJUGATED\MEDROXYPROGESTERONE ACETATE
     Dosage: UNK
  2. CHANTIX [Suspect]
     Active Substance: VARENICLINE TARTRATE
     Dosage: UNK

REACTIONS (7)
  - Sinusitis bacterial [Unknown]
  - Illness [Unknown]
  - Dizziness [Unknown]
  - Cough [Unknown]
  - Productive cough [Unknown]
  - Nasal congestion [Unknown]
  - Mobility decreased [Unknown]
